FAERS Safety Report 10341290 (Version 3)
Quarter: 2015Q1

REPORT INFORMATION
  Report Type: Spontaneous
  Country: US (occurrence: US)
  Receive Date: 20140725
  Receipt Date: 20150202
  Transmission Date: 20150720
  Serious: No
  Sender: FDA-Public Use
  Company Number: US-009507513-1407USA010893

PATIENT
  Age: 30 Year
  Sex: Female
  Weight: 68.9 kg

DRUGS (4)
  1. CYANOCOBALAMIN. [Concomitant]
     Active Substance: CYANOCOBALAMIN
  2. ATIVAN [Concomitant]
     Active Substance: LORAZEPAM
     Dosage: 1 MG, PRN (MAYBE ONECE EVERY 2 OR 3 WEEKS)
  3. NEXPLANON [Suspect]
     Active Substance: ETONOGESTREL
     Indication: CONTRACEPTION
     Dosage: 1 ROD, 3 YEARS PUT IN THE RIGHT ARM
     Route: 059
     Dates: start: 20140902
  4. NEXPLANON [Suspect]
     Active Substance: ETONOGESTREL
     Dosage: 1 ROD, 3 YEARS
     Route: 059
     Dates: start: 20130529, end: 201409

REACTIONS (8)
  - Amenorrhoea [Recovered/Resolved]
  - Device breakage [Recovered/Resolved]
  - Menometrorrhagia [Unknown]
  - Metrorrhagia [Not Recovered/Not Resolved]
  - Menorrhagia [Not Recovered/Not Resolved]
  - Device deployment issue [Unknown]
  - Device kink [Recovered/Resolved]
  - Amenorrhoea [Recovered/Resolved]

NARRATIVE: CASE EVENT DATE: 20130529
